FAERS Safety Report 16689612 (Version 1)
Quarter: 2019Q3

REPORT INFORMATION
  Report Type: Report from Study
  Country: US (occurrence: US)
  Receive Date: 20190809
  Receipt Date: 20190809
  Transmission Date: 20191004
  Serious: Yes (Hospitalization)
  Sender: FDA-Public Use
  Company Number: US-CELGENEUS-USA-20190604697

PATIENT
  Age: 60 Year
  Sex: Male
  Weight: 56.75 kg

DRUGS (4)
  1. CARBOPLATIN. [Suspect]
     Active Substance: CARBOPLATIN
     Indication: SQUAMOUS CELL CARCINOMA OF HEAD AND NECK
     Dosage: AUC 5
     Route: 041
     Dates: start: 20190219
  2. CETUXIMAB. [Suspect]
     Active Substance: CETUXIMAB
     Indication: SQUAMOUS CELL CARCINOMA OF HEAD AND NECK
     Dosage: 250 MILLIGRAM/SQ. METER
     Route: 041
     Dates: start: 20190219
  3. ABRAXANE [Suspect]
     Active Substance: PACLITAXEL
     Indication: SQUAMOUS CELL CARCINOMA OF HEAD AND NECK
     Dosage: 100 MILLIGRAM/SQ. METER
     Route: 041
     Dates: start: 20190219
  4. ABRAXANE [Suspect]
     Active Substance: PACLITAXEL
     Dosage: 75 MILLIGRAM/SQ. METER
     Route: 041
     Dates: start: 20190617

REACTIONS (10)
  - Chronic obstructive pulmonary disease [Unknown]
  - Cellulitis [Recovered/Resolved]
  - Laryngeal haemorrhage [Unknown]
  - Neutropenia [Unknown]
  - Sepsis [Unknown]
  - Anaemia [Unknown]
  - Hypotension [Unknown]
  - Hypokalaemia [Unknown]
  - Dyspnoea [Unknown]
  - Hyponatraemia [Unknown]

NARRATIVE: CASE EVENT DATE: 20190606
